FAERS Safety Report 15883694 (Version 1)
Quarter: 2019Q1

REPORT INFORMATION
  Report Type: Spontaneous
  Country: US (occurrence: US)
  Receive Date: 20190129
  Receipt Date: 20190129
  Transmission Date: 20190417
  Serious: Yes (Other)
  Sender: FDA-Public Use
  Company Number: None

PATIENT
  Age: 65 Year
  Sex: Female

DRUGS (2)
  1. FORTEO [Concomitant]
     Active Substance: TERIPARATIDE
     Dates: start: 20181213
  2. FORTEO [Suspect]
     Active Substance: TERIPARATIDE
     Route: 058
     Dates: start: 20181213, end: 20190128

REACTIONS (5)
  - Dyspnoea [None]
  - Joint swelling [None]
  - Throat tightness [None]
  - Gait inability [None]
  - Chest discomfort [None]

NARRATIVE: CASE EVENT DATE: 20190114
